FAERS Safety Report 8434420-5 (Version None)
Quarter: 2012Q2

REPORT INFORMATION
  Report Type: 
  Country: None (occurrence: None)
  Receive Date: 20120614
  Receipt Date: 20120607
  Transmission Date: 20120825
  Serious: Yes (Hospitalization)
  Sender: FDA-Public Use
  Company Number: CN-BAYER-2012-053243

PATIENT
  Age: 58 Year
  Sex: Male

DRUGS (4)
  1. METOPROLOL TARTRATE [Concomitant]
     Indication: ARRHYTHMIA
     Dosage: 12.5 MG, BID
     Route: 048
     Dates: start: 20110501
  2. ASPIRIN [Suspect]
     Dosage: UNK
     Route: 048
     Dates: end: 20110301
  3. METOPROLOL TARTRATE [Concomitant]
     Indication: ATRIAL FIBRILLATION
  4. ASPIRIN [Suspect]
     Dosage: 100 MG, QD
     Route: 048
     Dates: start: 20120501

REACTIONS (6)
  - CHROMATURIA [None]
  - HEPATIC ENZYME INCREASED [None]
  - DECREASED APPETITE [None]
  - JAUNDICE [None]
  - DRUG-INDUCED LIVER INJURY [None]
  - FATIGUE [None]
